FAERS Safety Report 21703999 (Version 1)
Quarter: 2022Q4

REPORT INFORMATION
  Report Type: Report from Study
  Country: CA (occurrence: None)
  Receive Date: 20221209
  Receipt Date: 20221209
  Transmission Date: 20230113
  Serious: Yes (Other)
  Sender: FDA-Public Use
  Company Number: 2022A395043

PATIENT
  Sex: Male

DRUGS (1)
  1. FASENRA [Suspect]
     Active Substance: BENRALIZUMAB
     Indication: Asthma
     Route: 058
     Dates: start: 20210921

REACTIONS (4)
  - Asthma [Unknown]
  - Drug ineffective [Unknown]
  - Insurance issue [Unknown]
  - Inappropriate schedule of product administration [Unknown]
